FAERS Safety Report 8905627 (Version 2)
Quarter: 2012Q4

REPORT INFORMATION
  Report Type: 
  Country: IR (occurrence: IR)
  Receive Date: 20121113
  Receipt Date: 20121211
  Transmission Date: 20130627
  Serious: Yes (Hospitalization, Other)
  Sender: FDA-Public Use
  Company Number: IR-WATSON-2012-19348

PATIENT
  Sex: Female
  Weight: 3 kg

DRUGS (1)
  1. TRAMADOL HYDROCHLORIDE (UNKNOWN) [Suspect]
     Indication: FOETAL EXPOSURE DURING PREGNANCY
     Dosage: UNK, unknown
     Route: 064

REACTIONS (10)
  - Feeding disorder neonatal [Recovered/Resolved]
  - Grand mal convulsion [Recovered/Resolved]
  - Myoclonus [Recovered/Resolved]
  - Drug withdrawal syndrome neonatal [Recovered/Resolved]
  - Foetal exposure during pregnancy [Recovered/Resolved]
  - Hypertonia [Recovered/Resolved]
  - Nausea [Recovered/Resolved]
  - Vomiting [Recovered/Resolved]
  - Tremor [Recovered/Resolved]
  - Agitation [Recovered/Resolved]
